FAERS Safety Report 10218638 (Version 2)
Quarter: 2014Q3

REPORT INFORMATION
  Report Type: Spontaneous
  Country: US (occurrence: US)
  Receive Date: 20140605
  Receipt Date: 20140909
  Transmission Date: 20150326
  Serious: Yes (Other)
  Sender: FDA-Public Use
  Company Number: US-PFIZER INC-2014152024

PATIENT
  Age: 63 Year
  Sex: Male

DRUGS (1)
  1. XELJANZ [Suspect]
     Active Substance: TOFACITINIB CITRATE
     Indication: RHEUMATOID ARTHRITIS
     Dosage: 5 MG, 1 TAB TWICE DAILY
     Route: 048
     Dates: start: 20140319

REACTIONS (3)
  - Mobility decreased [Recovered/Resolved]
  - Rheumatoid arthritis [Recovered/Resolved]
  - Nerve compression [Unknown]

NARRATIVE: CASE EVENT DATE: 2014
